FAERS Safety Report 10753119 (Version 2)
Quarter: 2015Q2

REPORT INFORMATION
  Report Type: Spontaneous
  Country: US (occurrence: US)
  Receive Date: 20150130
  Receipt Date: 20150401
  Transmission Date: 20150821
  Serious: No
  Sender: FDA-Public Use
  Company Number: US-PFIZER INC-2015034811

PATIENT
  Age: 62 Year
  Sex: Female

DRUGS (1)
  1. PREMARIN [Suspect]
     Active Substance: ESTROGENS, CONJUGATED
     Indication: MENOPAUSAL SYMPTOMS
     Dosage: UNK

REACTIONS (4)
  - Drug dispensing error [Unknown]
  - Screaming [Unknown]
  - Depressed mood [Unknown]
  - Abnormal behaviour [Unknown]
